FAERS Safety Report 23302133 (Version 1)
Quarter: 2023Q4

REPORT INFORMATION
  Report Type: Spontaneous
  Country: UA (occurrence: UA)
  Receive Date: 20231215
  Receipt Date: 20231215
  Transmission Date: 20240110
  Serious: Yes (Death, Other)
  Sender: FDA-Public Use
  Company Number: UA-FreseniusKabi-FK202320037

PATIENT
  Age: 22 Month
  Sex: Male
  Weight: 3.6 kg

DRUGS (6)
  1. PROPOFOL [Suspect]
     Active Substance: PROPOFOL
     Indication: General anaesthesia
     Dosage: 3 MG/KG 1/1 DAY(S)?EMULSION FOR INJECTION/INFUSION
     Route: 040
     Dates: start: 20231113, end: 20231113
  2. Atracurium ? bottle, 10 mg/1 ml; [Concomitant]
     Indication: Product used for unknown indication
     Dosage: INTRAVENOUS BOLUS, 0.5 ML 1/1 HOUR(S)
     Route: 040
     Dates: start: 20231113, end: 20231113
  3. Ketamin? amp., 50 mg/1 ml; [Concomitant]
     Indication: Product used for unknown indication
     Dosage: 0.5 ML 1/1 MINUTE(S)
     Route: 040
     Dates: start: 20231113, end: 20231113
  4. Sodium oxybutyrate ? amp., 200 mg/1 ml; [Concomitant]
     Indication: Product used for unknown indication
     Dosage: 2 ML 2/1 HOUR(S)
     Route: 040
     Dates: start: 20231113, end: 20231113
  5. Fentanyl ? amp. of 2 mL; [Concomitant]
     Indication: Product used for unknown indication
     Dosage: 0.5 ML 4/1 HOUR(S)
     Route: 040
     Dates: start: 20231113, end: 20231113
  6. Ceftriaxone ? bottle, 1 g; [Concomitant]
     Indication: Product used for unknown indication
     Dosage: 0.5 GRAMS 1/1 DAY(S) FROM
     Route: 042
     Dates: start: 20231113, end: 20231113

REACTIONS (1)
  - Cardiopulmonary failure [Fatal]

NARRATIVE: CASE EVENT DATE: 20231113
